FAERS Safety Report 13836123 (Version 1)
Quarter: 2017Q3

REPORT INFORMATION
  Report Type: Spontaneous
  Country: CH (occurrence: CH)
  Receive Date: 20170804
  Receipt Date: 20170804
  Transmission Date: 20171127
  Serious: Yes (Disabling, Other)
  Sender: FDA-Public Use
  Company Number: CH-ABBVIE-17P-151-2061039-00

PATIENT
  Sex: Male

DRUGS (2)
  1. DEPAKINE CHRONO [Suspect]
     Active Substance: VALPROATE SODIUM
     Indication: MATERNAL EXPOSURE TIMING UNSPECIFIED
     Route: 064
  2. VALPROATE SODIUM. [Suspect]
     Active Substance: VALPROATE SODIUM
     Indication: EPILEPSY
     Route: 065

REACTIONS (19)
  - Attention deficit/hyperactivity disorder [Unknown]
  - Reading disorder [Unknown]
  - Metabolic acidosis [Unknown]
  - Dysgraphia [Unknown]
  - Slow response to stimuli [Unknown]
  - Gait disturbance [Unknown]
  - Dysarthria [Unknown]
  - Severe myoclonic epilepsy of infancy [Unknown]
  - Foetal distress syndrome [Unknown]
  - Echolalia [Unknown]
  - Seizure [Unknown]
  - Myoclonus [Unknown]
  - Dependent personality disorder [Unknown]
  - Asocial behaviour [Unknown]
  - Motor dysfunction [Unknown]
  - Speech disorder developmental [Not Recovered/Not Resolved]
  - Epilepsy [Unknown]
  - Neurodevelopmental disorder [Not Recovered/Not Resolved]
  - Foetal exposure during pregnancy [Unknown]

NARRATIVE: CASE EVENT DATE: 2000
